FAERS Safety Report 6259147-X (Version None)
Quarter: 2009Q3

REPORT INFORMATION
  Report Type: 
  Country: None (occurrence: None)
  Receive Date: 20090702
  Receipt Date: 20090618
  Transmission Date: 20100115
  Serious: Yes (Hospitalization)
  Sender: FDA-Public Use
  Company Number: 2009AL002252

PATIENT
  Age: 47 Year
  Sex: Male

DRUGS (7)
  1. DIGOXIN [Suspect]
     Dosage: 0.25MG, DAILY, PO
     Route: 048
     Dates: start: 20040101, end: 20080101
  2. GLUCOPHAGE [Concomitant]
  3. GLYBURIDE [Concomitant]
  4. COREG [Concomitant]
  5. ALDACTONE [Concomitant]
  6. MONOPRIL [Concomitant]
  7. LASIX [Concomitant]

REACTIONS (6)
  - CHEST DISCOMFORT [None]
  - CHEST PAIN [None]
  - ECONOMIC PROBLEM [None]
  - INJURY [None]
  - SURGERY [None]
  - UNEVALUABLE EVENT [None]
